FAERS Safety Report 8173915 (Version 3)
Quarter: 2013Q2

REPORT INFORMATION
  Report Type: Report from Study
  Country: MX (occurrence: MX)
  Receive Date: 20111010
  Receipt Date: 20130625
  Transmission Date: 20140414
  Serious: Yes (Hospitalization, Other)
  Sender: FDA-Public Use
  Company Number: PHHY2011MX87145

PATIENT
  Sex: Male

DRUGS (2)
  1. DIOVAN [Suspect]
     Indication: HYPERTENSION
     Dosage: 2 DF, UNK
     Route: 048
     Dates: start: 20080601, end: 201304
  2. METOPROLOL [Concomitant]
     Indication: HYPERTENSION
     Dosage: 1 UKN, UNK
     Dates: start: 201101

REACTIONS (2)
  - Intracranial aneurysm [Recovered/Resolved]
  - Hypertension [Recovered/Resolved]
